FAERS Safety Report 10252022 (Version 1)
Quarter: 2014Q2

REPORT INFORMATION
  Report Type: Spontaneous
  Country: FR (occurrence: FR)
  Receive Date: 20140623
  Receipt Date: 20140623
  Transmission Date: 20141212
  Serious: Yes (Other)
  Sender: FDA-Public Use
  Company Number: FR-JNJFOC-20140608347

PATIENT
  Sex: 0

DRUGS (9)
  1. DOXORUBICIN [Suspect]
     Indication: B-CELL LYMPHOMA
     Route: 042
  2. RITUXIMAB [Suspect]
     Indication: B-CELL LYMPHOMA
     Route: 065
  3. CYCLOPHOSPHAMIDE [Suspect]
     Indication: B-CELL LYMPHOMA
     Route: 065
  4. VINCRISTINE [Suspect]
     Indication: B-CELL LYMPHOMA
     Route: 065
  5. PREDNISONE [Suspect]
     Indication: B-CELL LYMPHOMA
     Route: 065
  6. LENALIDOMIDE [Suspect]
     Indication: B-CELL LYMPHOMA
     Dosage: DAYS 1-14
     Route: 048
  7. PEGFILGRASTIM [Suspect]
     Indication: B-CELL LYMPHOMA
     Dosage: DAYS 4
     Route: 065
  8. RITUXIMAB [Suspect]
     Indication: B-CELL LYMPHOMA
     Route: 041
  9. ASPIRIN [Concomitant]
     Indication: PROPHYLAXIS
     Dosage: DAYS 4
     Route: 048

REACTIONS (9)
  - Neutropenia [Unknown]
  - Neuropathy peripheral [Unknown]
  - Febrile neutropenia [Unknown]
  - Thrombocytopenia [Unknown]
  - B-cell lymphoma [Unknown]
  - Peripheral sensory neuropathy [Unknown]
  - Skin toxicity [Unknown]
  - Thrombosis [Unknown]
  - Lymphoma [Unknown]
